FAERS Safety Report 6016994-7 (Version None)
Quarter: 2008Q4

REPORT INFORMATION
  Report Type: 
  Country: None (occurrence: None)
  Receive Date: 20081223
  Receipt Date: 20081209
  Transmission Date: 20090506
  Serious: Yes (Other)
  Sender: FDA-Public Use
  Company Number: US-ROCHE-596456

PATIENT
  Sex: Male
  Weight: 100.2 kg

DRUGS (6)
  1. PEGASYS [Suspect]
     Indication: HEPATITIS C
     Dosage: STRENGTH: 180 UG/ .5 ML
     Route: 058
     Dates: start: 20081031
  2. COPEGUS [Suspect]
     Indication: HEPATITIS C
     Dosage: THREE IN THE AM AND TWO IN THE PM
     Route: 048
     Dates: start: 20081031, end: 20081105
  3. PRILOSEC [Concomitant]
     Dosage: FREQUENCY: DAILY
     Route: 048
  4. ZIAC [Concomitant]
     Route: 048
  5. ASPIRIN [Concomitant]
     Dosage: FREQUENCY: DAILY
     Route: 048
  6. SAW PALMETTO [Concomitant]
     Route: 048

REACTIONS (1)
  - URINARY RETENTION [None]
